FAERS Safety Report 24111198 (Version 4)
Quarter: 2024Q4

REPORT INFORMATION
  Report Type: Spontaneous
  Country: KR (occurrence: KR)
  Receive Date: 20240718
  Receipt Date: 20241101
  Transmission Date: 20250114
  Serious: No
  Sender: PFIZER
  Company Number: KR-PFIZER INC-202400217234

PATIENT

DRUGS (1)
  1. XYNTHA [Suspect]
     Active Substance: ANTIHEMOPHILIC FACTOR, HUMAN RECOMBINANT RESIDUES 743-1636 DELETED
     Dosage: UNK

REACTIONS (1)
  - Device leakage [Unknown]
